FAERS Safety Report 4467976-8 (Version None)
Quarter: 2004Q4

REPORT INFORMATION
  Report Type: 
  Country: None (occurrence: None)
  Receive Date: 20041004
  Receipt Date: 20040927
  Transmission Date: 20050328
  Serious: Yes (Hospitalization)
  Sender: FDA-Public Use
  Company Number: CA-2004-028286

PATIENT
  Age: 34 Year
  Sex: Male

DRUGS (1)
  1. BETASERON [Suspect]
     Indication: MULTIPLE SCLEROSIS
     Dosage: 8 MIU , EVERY 2D, SUBCUTANEOUS
     Route: 058
     Dates: start: 19960401

REACTIONS (2)
  - CELLULITIS [None]
  - MYALGIA [None]
